FAERS Safety Report 20156780 (Version 1)
Quarter: 2021Q4

REPORT INFORMATION
  Report Type: Spontaneous
  Country: US (occurrence: US)
  Receive Date: 20211207
  Receipt Date: 20211207
  Transmission Date: 20220303
  Serious: No
  Sender: FDA-Public Use
  Company Number: US-MYLANLABS-2021M1080925

PATIENT
  Sex: Male
  Weight: 75 kg

DRUGS (4)
  1. ABIRATERONE ACETATE [Suspect]
     Active Substance: ABIRATERONE ACETATE
     Indication: Prostate cancer
     Dosage: ONCE A DAY (QD)
     Route: 048
     Dates: start: 20210604
  2. PREDNISONE                         /00044702/ [Concomitant]
     Indication: Hypertension
     Dosage: UNK
  3. LISINOPRIL                         /00894002/ [Concomitant]
     Indication: Hypertension
     Dosage: UNK
  4. TAMSULOSIN [Concomitant]
     Active Substance: TAMSULOSIN
     Indication: Product used for unknown indication
     Dosage: UNK

REACTIONS (6)
  - Skin swelling [Not Recovered/Not Resolved]
  - Hot flush [Not Recovered/Not Resolved]
  - Fluid retention [Not Recovered/Not Resolved]
  - Dyspnoea [Not Recovered/Not Resolved]
  - Liver function test increased [Recovering/Resolving]
  - Intentional product use issue [Not Recovered/Not Resolved]
